FAERS Safety Report 8295544-9 (Version None)
Quarter: 2012Q2

REPORT INFORMATION
  Report Type: 
  Country: None (occurrence: None)
  Receive Date: 20120418
  Receipt Date: 20120416
  Transmission Date: 20120825
  Serious: No
  Sender: FDA-Public Use
  Company Number: US-TEVA-333817USA

PATIENT
  Sex: Female
  Weight: 97.156 kg

DRUGS (2)
  1. PLAN B ONE-STEP [Suspect]
     Indication: POST COITAL CONTRACEPTION
     Dosage: 1.5 MILLIGRAM;
     Route: 048
     Dates: start: 20120406, end: 20120406
  2. LEXAPRO [Concomitant]
     Indication: DEPRESSION
     Dosage: 60 MILLIGRAM;
     Route: 048

REACTIONS (1)
  - ANXIETY [None]
